FAERS Safety Report 11404015 (Version 1)
Quarter: 2015Q3

REPORT INFORMATION
  Report Type: Spontaneous
  Country: JP (occurrence: JP)
  Receive Date: 20150821
  Receipt Date: 20150821
  Transmission Date: 20151125
  Serious: Yes (Other)
  Sender: FDA-Public Use
  Company Number: JP-PFIZER INC-2015270904

PATIENT
  Age: 21 Year
  Sex: Male

DRUGS (4)
  1. CERCINE [Concomitant]
     Active Substance: DIAZEPAM
  2. LYRICA [Suspect]
     Active Substance: PREGABALIN
     Dosage: 100 MG, DAILY (25 MG IN THE MORNING, 25 MG IN THE EVENING AND 50 MG BEFORE BEDTIME)
     Route: 048
  3. LYRICA [Suspect]
     Active Substance: PREGABALIN
     Indication: FIBROMYALGIA
     Dosage: 25 MG, 2X/DAY IN THE MORNING AND IN THE EVENING
     Route: 048
  4. DEPAKENE [Concomitant]
     Active Substance: VALPROIC ACID

REACTIONS (13)
  - Dizziness [Unknown]
  - Mental impairment [Unknown]
  - Nausea [Unknown]
  - Affect lability [Unknown]
  - Somnolence [Unknown]
  - Fear [Unknown]
  - Suicidal ideation [Unknown]
  - Headache [Unknown]
  - Fatigue [Unknown]
  - Hypoaesthesia [Unknown]
  - Mental disorder [Unknown]
  - Dysarthria [Unknown]
  - Hallucination [Unknown]
